FAERS Safety Report 9515254 (Version 1)
Quarter: 2013Q3

REPORT INFORMATION
  Report Type: Spontaneous
  Country: BR (occurrence: BR)
  Receive Date: 20130911
  Receipt Date: 20130911
  Transmission Date: 20140515
  Serious: Yes (Other)
  Sender: FDA-Public Use
  Company Number: BR-JNJFOC-20130902542

PATIENT
  Sex: Female

DRUGS (4)
  1. GOLIMUMAB [Suspect]
     Indication: ANKYLOSING SPONDYLITIS
     Route: 058
     Dates: start: 20130627
  2. LEVOTHYROXINE [Concomitant]
     Indication: HYPOTHYROIDISM
     Route: 065
  3. TYLENOL [Concomitant]
     Indication: PAIN
     Route: 065
  4. OMEPRAZOLE [Concomitant]
     Indication: GASTROINTESTINAL DISORDER THERAPY
     Route: 065

REACTIONS (6)
  - Depressed mood [Unknown]
  - Bedridden [Unknown]
  - Fatigue [Unknown]
  - Arthralgia [Unknown]
  - Aggression [Unknown]
  - Therapeutic response unexpected [Unknown]
